FAERS Safety Report 5427391-7 (Version None)
Quarter: 2007Q3

REPORT INFORMATION
  Report Type: 
  Country: None (occurrence: None)
  Receive Date: 20070828
  Receipt Date: 20070821
  Transmission Date: 20080115
  Serious: Yes (Disabling, Other)
  Sender: FDA-Public Use
  Company Number: PHEH2007US06505

PATIENT
  Age: 65 Year
  Weight: 64.852 kg

DRUGS (8)
  1. ZELNORM [Suspect]
     Indication: CONSTIPATION
     Dosage: 6 MG, BID
     Dates: start: 20061006
  2. AZMACORT [Concomitant]
  3. PRILOSEC [Concomitant]
     Dosage: UNK BID
  4. COMBIVENT                               /GFR/ [Concomitant]
  5. LORTAB [Concomitant]
  6. LIBRAX [Concomitant]
  7. LEVSIN [Concomitant]
     Dosage: PRN
  8. ACIPHEX [Concomitant]

REACTIONS (1)
  - ARRHYTHMIA [None]
